FAERS Safety Report 4485738-2 (Version None)
Quarter: 2004Q4

REPORT INFORMATION
  Report Type: 
  Country: None (occurrence: None)
  Receive Date: 20041026
  Receipt Date: 20041014
  Transmission Date: 20050328
  Serious: Yes (Death, Other)
  Sender: FDA-Public Use
  Company Number: IL-JNJFOC-20041006481

PATIENT
  Sex: Female

DRUGS (1)
  1. DOXIL [Suspect]
     Dosage: DOSE UNKNOWN

REACTIONS (3)
  - NEUTROPENIA [None]
  - PNEUMONIA [None]
  - STOMATITIS [None]
